FAERS Safety Report 4517706-6 (Version None)
Quarter: 2004Q4

REPORT INFORMATION
  Report Type: 
  Country: None (occurrence: None)
  Receive Date: 20041130
  Receipt Date: 20041119
  Transmission Date: 20050328
  Serious: Yes (Hospitalization)
  Sender: FDA-Public Use
  Company Number: 25667

PATIENT
  Age: 65 Year
  Sex: Female

DRUGS (7)
  1. NORFLEX [Suspect]
     Indication: NECK INJURY
     Dosage: (100 MG, 1 IN 1 DAY(S)), ORAL
     Route: 048
     Dates: start: 20041019
  2. NORFLEX [Suspect]
     Indication: SURGERY
     Dosage: (100 MG, 1 IN 1 DAY(S)), ORAL
     Route: 048
     Dates: start: 20041019
  3. LANOXIN [Suspect]
  4. ASPIRIN [Suspect]
  5. ATENOLOL [Suspect]
  6. LASIX [Suspect]
  7. XANAX [Suspect]

REACTIONS (2)
  - ANGINA PECTORIS [None]
  - ANXIETY [None]
